FAERS Safety Report 5275862-9 (Version None)
Quarter: 2007Q1

REPORT INFORMATION
  Report Type: 
  Country: None (occurrence: None)
  Receive Date: 20061213
  Receipt Date: 20041027
  Transmission Date: 20070707
  Serious: Yes (Hospitalization)
  Sender: FDA-Public Use
  Company Number: 2004UW20474

PATIENT
  Age: 31 Year
  Sex: Male

DRUGS (3)
  1. SEROQUEL [Suspect]
     Indication: PSYCHOTIC DISORDER
     Dosage: 250 MG DAILY PO
     Route: 048
     Dates: start: 20040801
  2. HALDOL [Concomitant]
  3. CELEXA [Concomitant]

REACTIONS (2)
  - CONVULSION [None]
  - VOMITING [None]
